FAERS Safety Report 17860332 (Version 3)
Quarter: 2023Q1

REPORT INFORMATION
  Report Type: Spontaneous
  Country: US (occurrence: US)
  Receive Date: 20200604
  Receipt Date: 20230125
  Transmission Date: 20230418
  Serious: Yes (Other)
  Sender: FDA-Public Use
  Company Number: None

PATIENT
  Age: 63 Year
  Sex: Female

DRUGS (3)
  1. BEOVU [Suspect]
     Active Substance: BROLUCIZUMAB-DBLL
     Indication: Neovascular age-related macular degeneration
     Dosage: 6 MG, QMO
     Route: 031
     Dates: start: 20200211
  2. BEOVU [Suspect]
     Active Substance: BROLUCIZUMAB-DBLL
     Dosage: 6 MG, QMO
     Route: 050
     Dates: start: 20200324
  3. BEOVU [Suspect]
     Active Substance: BROLUCIZUMAB-DBLL
     Dosage: 6 MG, QMO
     Route: 050
     Dates: start: 20200506, end: 20200506

REACTIONS (6)
  - Retinal vasculitis [Not Recovered/Not Resolved]
  - Retinal vascular occlusion [Not Recovered/Not Resolved]
  - Retinal artery occlusion [Unknown]
  - Blepharitis [Unknown]
  - Lagophthalmos [Unknown]
  - Dry eye [Unknown]

NARRATIVE: CASE EVENT DATE: 20200602
